FAERS Safety Report 7055746-6 (Version None)
Quarter: 2010Q4

REPORT INFORMATION
  Report Type: 
  Country: None (occurrence: None)
  Receive Date: 20101021
  Receipt Date: 20101012
  Transmission Date: 20110411
  Serious: Yes (Death, Life-Threatening, Other)
  Sender: FDA-Public Use
  Company Number: JP-ROCHE-724749

PATIENT
  Sex: Male
  Weight: 52.5 kg

DRUGS (15)
  1. AVASTIN [Suspect]
     Indication: LUNG ADENOCARCINOMA METASTATIC
     Dosage: DOSAGE UNCERTAIN.
     Route: 041
     Dates: start: 20100610, end: 20100610
  2. AVASTIN [Suspect]
     Route: 041
     Dates: start: 20100708, end: 20100708
  3. AVASTIN [Suspect]
     Route: 041
     Dates: start: 20100805, end: 20100805
  4. CARBOPLATIN [Concomitant]
     Dosage: DOSAGE UNCERTAIN.
     Route: 041
     Dates: start: 20100610, end: 20100610
  5. CARBOPLATIN [Concomitant]
     Dosage: DOSAGE UNCERTAIN.
     Route: 041
     Dates: start: 20100708, end: 20100708
  6. CARBOPLATIN [Concomitant]
     Dosage: DOSAGE UNCERTAIN.
     Route: 041
     Dates: start: 20100805, end: 20100805
  7. PACLITAXEL [Concomitant]
     Dosage: DOSAGE UNCERTAIN.
     Route: 041
     Dates: start: 20100610, end: 20100624
  8. PACLITAXEL [Concomitant]
     Dosage: DOSAGE UNCERTAIN.
     Route: 041
     Dates: start: 20100708, end: 20100722
  9. PACLITAXEL [Concomitant]
     Dosage: DOSAGE UNCERTAIN.
     Route: 041
     Dates: start: 20100805, end: 20100805
  10. OSTELUC [Concomitant]
     Route: 048
  11. GASTER D [Concomitant]
     Route: 048
     Dates: start: 20100408
  12. MAGNESIUM OXIDE [Concomitant]
     Dosage: PERORAL AGENT
     Route: 048
     Dates: start: 20100409
  13. CALONAL [Concomitant]
     Route: 048
     Dates: start: 20100428
  14. GABAPEN [Concomitant]
     Dates: start: 20100510
  15. MORPHINE HYDROCHLORIDE [Concomitant]
     Route: 048
     Dates: start: 20100610

REACTIONS (8)
  - BLOOD CALCIUM DECREASED [None]
  - BRONCHIAL FISTULA [None]
  - DELIRIUM [None]
  - DEMENTIA [None]
  - GALLBLADDER PERFORATION [None]
  - HAEMOPTYSIS [None]
  - PNEUMOTHORAX [None]
  - STAPHYLOCOCCAL INFECTION [None]
